FAERS Safety Report 9030464 (Version 1)
Quarter: 2013Q1

REPORT INFORMATION
  Report Type: Spontaneous
  Country: JP (occurrence: JP)
  Receive Date: 20130122
  Receipt Date: 20130122
  Transmission Date: 20140127
  Serious: Yes (Other)
  Sender: FDA-Public Use
  Company Number: JP-PFIZER INC-2012266946

PATIENT
  Age: 80 Year
  Sex: Female

DRUGS (2)
  1. AMLODIN [Suspect]
     Indication: HYPERTENSION
     Dosage: 5 MG, DAILY
  2. AMLODIPINE BESYLATE\TELMISARTAN [Suspect]
     Dosage: 1 DF, 1X/DAY

REACTIONS (1)
  - Pancytopenia [Unknown]
